FAERS Safety Report 6419864-5 (Version None)
Quarter: 2009Q4

REPORT INFORMATION
  Report Type: 
  Country: None (occurrence: None)
  Receive Date: 20091029
  Receipt Date: 20091027
  Transmission Date: 20100525
  Serious: Yes (Death)
  Sender: FDA-Public Use
  Company Number: IT-BAYER-200937100GPV

PATIENT
  Age: 68 Year
  Sex: Male

DRUGS (5)
  1. NEXAVAR [Suspect]
     Indication: HEPATIC NEOPLASM MALIGNANT
     Dosage: TOTAL DAILY DOSE: 800 MG
     Route: 048
     Dates: start: 20090318, end: 20090928
  2. LANSOX [Concomitant]
     Route: 048
  3. DEURSIL [Concomitant]
     Route: 048
  4. LAEVOLAC [Concomitant]
     Route: 048
  5. EUTIROX [Concomitant]
     Route: 048

REACTIONS (1)
  - BILIARY COLIC [None]
